FAERS Safety Report 15658008 (Version 2)
Quarter: 2018Q4

REPORT INFORMATION
  Report Type: Spontaneous
  Country: ES (occurrence: ES)
  Receive Date: 20181126
  Receipt Date: 20181207
  Transmission Date: 20190205
  Serious: Yes (Life-Threatening, Hospitalization, Other)
  Sender: FDA-Public Use
  Company Number: ES-JNJFOC-20181128954

PATIENT
  Age: 25 Year
  Sex: Male

DRUGS (2)
  1. PALIPERIDONE. [Suspect]
     Active Substance: PALIPERIDONE
     Indication: PSYCHOTIC DISORDER
     Route: 048
  2. CLOZAPINE. [Suspect]
     Active Substance: CLOZAPINE
     Indication: PSYCHOTIC DISORDER
     Route: 065

REACTIONS (11)
  - Hallucination, visual [Recovering/Resolving]
  - Orthostatic hypotension [Recovering/Resolving]
  - Abnormal behaviour [Recovering/Resolving]
  - Tremor [Recovering/Resolving]
  - Sedation complication [Recovering/Resolving]
  - Pallor [Recovering/Resolving]
  - Bradykinesia [Recovering/Resolving]
  - Posture abnormal [Recovering/Resolving]
  - Neuroleptic malignant syndrome [Recovering/Resolving]
  - Syncope [Recovering/Resolving]
  - Disorientation [Unknown]
